FAERS Safety Report 11566750 (Version 1)
Quarter: 2015Q3

REPORT INFORMATION
  Report Type: Spontaneous
  Country: DE (occurrence: DE)
  Receive Date: 20150929
  Receipt Date: 20150929
  Transmission Date: 20151125
  Serious: Yes (Death, Other)
  Sender: FDA-Public Use
  Company Number: DE-SUN PHARMACEUTICAL INDUSTRIES LTD-12SUNTEL11P

PATIENT
  Age: 51 Year
  Sex: Male

DRUGS (1)
  1. TEMOZOLOMIDE. [Suspect]
     Active Substance: TEMOZOLOMIDE
     Indication: CHEMOTHERAPY
     Dosage: 75 MG/M2, DAILY
     Route: 048
     Dates: start: 200808, end: 200809

REACTIONS (2)
  - Hepatitis cholestatic [Unknown]
  - Death [Fatal]
